FAERS Safety Report 8069455-8 (Version None)
Quarter: 2012Q1

REPORT INFORMATION
  Report Type: 
  Country: None (occurrence: None)
  Receive Date: 20120119
  Receipt Date: 20120112
  Transmission Date: 20120608
  Serious: Yes (Death, Life-Threatening, Hospitalization)
  Sender: FDA-Public Use
  Company Number: 128078-1

PATIENT
  Age: 68 Year
  Sex: Male
  Weight: 55 kg

DRUGS (9)
  1. ALLOPURINOL (ALLOPRUINOL) [Concomitant]
  2. GRANISETRON [Concomitant]
  3. DEXAMETHASONE [Concomitant]
  4. DEXLANSOPRAZOLE (DEXLANSOPRAZOLE) [Concomitant]
  5. DIPHENOXYLATE (DIPHENOXYLATE) [Concomitant]
  6. DIPHENHYDRAMINE HCL [Concomitant]
  7. LEUCOVORIN CALCIUM [Suspect]
     Indication: OESOPHAGEAL CARCINOMA
     Dosage: 400 MG/M2 IV
     Dates: start: 20110715
  8. ASPIRIN [Concomitant]
  9. TYLENOL /SCH/ (PARACETAMOL) [Concomitant]

REACTIONS (3)
  - NEUTROPENIA [None]
  - SEPSIS [None]
  - PYREXIA [None]
